FAERS Safety Report 8904376 (Version 4)
Quarter: 2013Q3

REPORT INFORMATION
  Report Type: Spontaneous
  Country: US (occurrence: US)
  Receive Date: 20121112
  Receipt Date: 20130919
  Transmission Date: 20140515
  Serious: Yes (Hospitalization, Disabling, Other)
  Sender: FDA-Public Use
  Company Number: US-MERCK-1211USA004394

PATIENT
  Sex: Female
  Weight: 54.42 kg

DRUGS (4)
  1. FOSAMAX [Suspect]
     Indication: OSTEOPOROSIS
     Dosage: 35 MG, UNK
     Route: 048
     Dates: start: 20010709, end: 2002
  2. FOSAMAX [Suspect]
     Indication: OSTEOPENIA
     Dosage: 70 MG, UNK
     Route: 048
     Dates: start: 200212, end: 20070709
  3. CALCIUM (UNSPECIFIED) (+) VITAMIN D (UNSPECIFIED) [Concomitant]
     Indication: OSTEOPENIA
     Dosage: UNK, BID
  4. FOLIC ACID [Concomitant]
     Dosage: UNK
     Dates: start: 1995

REACTIONS (57)
  - Femur fracture [Not Recovered/Not Resolved]
  - Hip fracture [Recovering/Resolving]
  - Internal fixation of fracture [Not Recovered/Not Resolved]
  - Open reduction of fracture [Not Recovered/Not Resolved]
  - Borderline personality disorder [Unknown]
  - Medical device removal [Unknown]
  - Narcissistic personality disorder [Unknown]
  - Major depression [Unknown]
  - Alcohol detoxification [Unknown]
  - Anxiety [Unknown]
  - Anaemia postoperative [Unknown]
  - Alcoholism [Unknown]
  - Bulimia nervosa [Unknown]
  - Death of relative [Unknown]
  - Ulcer haemorrhage [Unknown]
  - Pain in extremity [Not Recovered/Not Resolved]
  - Fall [Unknown]
  - Fall [Unknown]
  - Fall [Unknown]
  - Wrist fracture [Unknown]
  - Clavicle fracture [Unknown]
  - Foot fracture [Unknown]
  - Depression [Unknown]
  - Depression [Unknown]
  - Hypothyroidism [Unknown]
  - Anxiety [Unknown]
  - Endodontic procedure [Unknown]
  - Tooth extraction [Unknown]
  - Radius fracture [Unknown]
  - Varicose vein operation [Unknown]
  - Interstitial lung disease [Not Recovered/Not Resolved]
  - Arthritis [Unknown]
  - Hypotension [Not Recovered/Not Resolved]
  - Malnutrition [Unknown]
  - Hypoalbuminaemia [Unknown]
  - Joint dislocation [Unknown]
  - Foot fracture [Unknown]
  - Alcoholism [Not Recovered/Not Resolved]
  - Bulimia nervosa [Unknown]
  - Device breakage [Unknown]
  - Leukopenia [Unknown]
  - Thyroid function test abnormal [Unknown]
  - Intervertebral disc degeneration [Unknown]
  - Upper limb fracture [Unknown]
  - Scoliosis [Unknown]
  - Head injury [Unknown]
  - Tremor [Unknown]
  - Vertebral osteophyte [Unknown]
  - Dental implantation [Unknown]
  - Anxiety [Unknown]
  - Infection [Unknown]
  - Peptic ulcer [Unknown]
  - Gastrooesophageal reflux disease [Unknown]
  - Constipation [Unknown]
  - Arthralgia [Unknown]
  - Headache [Unknown]
  - Drug ineffective [Unknown]
